FAERS Safety Report 9280428 (Version 1)
Quarter: 2013Q2

REPORT INFORMATION
  Report Type: Spontaneous
  Country: BR (occurrence: BR)
  Receive Date: 20130509
  Receipt Date: 20130509
  Transmission Date: 20140414
  Serious: Yes (Other)
  Sender: FDA-Public Use
  Company Number: PHHY2013BR044522

PATIENT
  Age: 52 Year
  Sex: Female

DRUGS (7)
  1. LOSARTAN [Suspect]
     Indication: HYPERTENSION
     Dates: start: 2010
  2. AMLODIPINE [Suspect]
     Indication: HYPERTENSION
     Dates: start: 2011
  3. METHOTREXATE [Suspect]
  4. METAMIZOLE [Suspect]
  5. CORTISONE [Suspect]
  6. VIMOVO [Concomitant]
     Indication: RHEUMATOID ARTHRITIS
     Dosage: 520 MG, UNK
     Dates: start: 20130325, end: 20130328
  7. HYDROCHLOROTHIAZIDE [Concomitant]
     Indication: HYPERTENSION
     Dates: start: 2006

REACTIONS (11)
  - Pneumonia [Recovering/Resolving]
  - Nausea [Not Recovered/Not Resolved]
  - Cough [Unknown]
  - Nasopharyngitis [Unknown]
  - Dyspnoea [Recovering/Resolving]
  - Vaginal discharge [Unknown]
  - Agitation [Unknown]
  - Local swelling [Unknown]
  - Headache [Not Recovered/Not Resolved]
  - Pruritus [Not Recovered/Not Resolved]
  - Hypersensitivity [Unknown]
